FAERS Safety Report 5257144-4 (Version None)
Quarter: 2007Q1

REPORT INFORMATION
  Report Type: 
  Country: None (occurrence: None)
  Receive Date: 20070302
  Receipt Date: 20070222
  Transmission Date: 20070707
  Serious: Yes (Death)
  Sender: FDA-Public Use
  Company Number: 15729

PATIENT
  Age: 9 Year
  Sex: Male
  Weight: 25 kg

DRUGS (10)
  1. PENTOSTATIN [Suspect]
     Indication: GRAFT VERSUS HOST DISEASE
     Dosage: 4 MG/M2 FORTNIGHTLY IV
     Route: 042
     Dates: start: 20061213, end: 20070213
  2. KEPPRA [Concomitant]
  3. METHADONE HCL [Concomitant]
  4. DILAUDID [Concomitant]
  5. ATROPINE [Concomitant]
  6. FENTANYL [Concomitant]
  7. ZOFRAN [Concomitant]
  8. ATIVAN [Concomitant]
  9. METHYLPHENIDATE HCL [Concomitant]
  10. LOMOTIL [Concomitant]

REACTIONS (7)
  - BLINDNESS TRANSIENT [None]
  - CONVULSION [None]
  - DIARRHOEA [None]
  - EATING DISORDER [None]
  - OVERDOSE [None]
  - PROGRESSIVE MULTIFOCAL LEUKOENCEPHALOPATHY [None]
  - SEPSIS [None]
